FAERS Safety Report 8011176-1 (Version None)
Quarter: 2011Q4

REPORT INFORMATION
  Report Type: 
  Country: None (occurrence: None)
  Receive Date: 20111228
  Receipt Date: 20111215
  Transmission Date: 20120403
  Serious: Yes (Hospitalization)
  Sender: FDA-Public Use
  Company Number: JP-WATSON-2011-19021

PATIENT
  Sex: Male

DRUGS (39)
  1. WARFARIN SODIUM [Concomitant]
     Dosage: UNK
     Route: 048
     Dates: start: 20110725
  2. RIZE                               /00624801/ [Concomitant]
     Indication: PRODUCT USED FOR UNKNOWN INDICATION
     Dosage: 5 MG, UNK
     Route: 048
     Dates: start: 20110525
  3. RIZE                               /00624801/ [Concomitant]
     Dosage: TAKEN WHEN HAVING DIFFICULTY SLEEPING
     Route: 048
     Dates: start: 20110620
  4. PURSENNID [Concomitant]
     Indication: PRODUCT USED FOR UNKNOWN INDICATION
     Dosage: 12 MG, UNK
     Route: 048
     Dates: start: 20110525
  5. YAKUBAN [Concomitant]
     Indication: PRODUCT USED FOR UNKNOWN INDICATION
     Dosage: 40 MG, UNK
     Route: 062
     Dates: start: 20110525
  6. MOHRUS TAPE [Concomitant]
     Dosage: 40 MG, UNK
     Route: 062
     Dates: start: 20110725
  7. ASVERIN [Concomitant]
     Indication: PRODUCT USED FOR UNKNOWN INDICATION
     Dosage: 40 MG, UNK
     Route: 048
     Dates: start: 20110725
  8. ASPIRIN [Concomitant]
     Indication: PRODUCT USED FOR UNKNOWN INDICATION
     Dosage: 100 MG, UNK
     Route: 048
     Dates: start: 20110525, end: 20110621
  9. CHINESE MEDICINE (KAKKON- TO) [Concomitant]
     Indication: PRODUCT USED FOR UNKNOWN INDICATION
     Dosage: 7.5 G, UNK
     Route: 048
     Dates: start: 20110725
  10. ASPIRIN [Concomitant]
     Dosage: UNK
     Route: 048
     Dates: start: 20110627
  11. MAGMITT [Concomitant]
     Indication: PRODUCT USED FOR UNKNOWN INDICATION
     Dosage: UNK
     Route: 048
     Dates: start: 20110525
  12. MAGMITT [Concomitant]
     Dosage: UNK
     Route: 048
     Dates: start: 20110725
  13. ISOSORBIDE DINITRATE [Concomitant]
     Dosage: 40 MG, UNK
     Route: 062
     Dates: start: 20110627
  14. CEROCRAL [Concomitant]
     Indication: PRODUCT USED FOR UNKNOWN INDICATION
     Dosage: UNK
     Dates: start: 20110525
  15. MAGMITT [Concomitant]
     Dosage: UNK
     Route: 048
     Dates: start: 20110620
  16. RIZE                               /00624801/ [Concomitant]
     Dosage: TAKEN WHEN HAVING DIFFICULTY SLEEPING
     Route: 048
     Dates: start: 20110725
  17. PREDNISOLONE [Concomitant]
     Indication: PRODUCT USED FOR UNKNOWN INDICATION
     Dosage: 5 MG, UNK
     Route: 048
     Dates: start: 20110620
  18. NITROGLYCERIN [Concomitant]
     Indication: PRODUCT USED FOR UNKNOWN INDICATION
     Dosage: TAKEN WHEN SYMTOMS OCCURED
     Route: 060
     Dates: start: 20110620
  19. NITROGLYCERIN [Concomitant]
     Dosage: 0.6 MG, UNK
     Route: 060
     Dates: start: 20110626, end: 20110626
  20. RAPAFLO [Suspect]
     Indication: DYSURIA
     Dosage: 8 MG, UNK
     Route: 048
     Dates: start: 20100329, end: 20100613
  21. CANDESARTAN CILEXETIL [Concomitant]
     Indication: PRODUCT USED FOR UNKNOWN INDICATION
     Dosage: 2 MG, UNK
     Route: 048
     Dates: start: 20110525, end: 20110621
  22. WARFARIN SODIUM [Concomitant]
     Dosage: UNK
     Route: 048
     Dates: start: 20110620
  23. CEROCRAL [Concomitant]
     Dosage: UNK
     Route: 048
     Dates: start: 20110725
  24. ISOSORBIDE MONONITRATE [Suspect]
     Indication: PRODUCT USED FOR UNKNOWN INDICATION
     Dosage: 40 MG, UNK
     Route: 048
     Dates: start: 20110725
  25. WARFARIN SODIUM [Concomitant]
     Indication: PRODUCT USED FOR UNKNOWN INDICATION
     Dosage: 1.5 MG, UNK
     Route: 048
     Dates: start: 20110525
  26. ISOSORBIDE DINITRATE [Concomitant]
     Indication: PRODUCT USED FOR UNKNOWN INDICATION
     Dosage: 40 MG, UNK
     Route: 062
     Dates: start: 20110525, end: 20110621
  27. CONIEL [Concomitant]
     Dosage: UNK
     Route: 048
     Dates: start: 20110627
  28. MOHRUS TAPE [Concomitant]
     Indication: PRODUCT USED FOR UNKNOWN INDICATION
     Dosage: 40 MG, UNK
     Route: 062
     Dates: start: 20110620
  29. RAPAFLO [Suspect]
     Dosage: UNK
     Route: 048
     Dates: start: 20100614, end: 20110803
  30. LANSOPRAZOLE [Concomitant]
     Indication: PRODUCT USED FOR UNKNOWN INDICATION
     Dosage: 15 MG, UNK
     Route: 048
     Dates: start: 20110525
  31. LANSOPRAZOLE [Concomitant]
     Dosage: UNK
     Dates: start: 20110725
  32. FERROUS SULFATE TAB [Concomitant]
     Indication: PRODUCT USED FOR UNKNOWN INDICATION
     Dosage: UNK
     Route: 048
     Dates: start: 20110525
  33. CEROCRAL [Concomitant]
     Dosage: UNK
     Route: 048
     Dates: start: 20110620
  34. NITROGLYCERIN [Concomitant]
     Dosage: TAKEN WHEN SYMPTOM OCCURRED
     Route: 060
     Dates: start: 20110725
  35. CONIEL [Concomitant]
     Indication: PRODUCT USED FOR UNKNOWN INDICATION
     Dosage: TAKEN WHEN HAVING HIGH BLOOD PRESSURE
     Route: 048
     Dates: start: 20110626, end: 20110626
  36. EPINASTINE HYDROCHLORIDE [Concomitant]
     Indication: PRODUCT USED FOR UNKNOWN INDICATION
     Dosage: 20 MG, UNK
     Route: 048
     Dates: start: 20110725
  37. LANSOPRAZOLE [Concomitant]
     Dosage: UNK
     Dates: start: 20110620
  38. PREDNISOLONE [Concomitant]
     Indication: PRODUCT USED FOR UNKNOWN INDICATION
     Dosage: 5 MG, UNK
     Route: 048
     Dates: start: 20110525, end: 20110621
  39. PREDNISOLONE [Concomitant]
     Dosage: 5 MG, UNK
     Route: 048
     Dates: start: 20110725

REACTIONS (1)
  - LOSS OF CONSCIOUSNESS [None]
